FAERS Safety Report 5961100-8 (Version None)
Quarter: 2008Q4

REPORT INFORMATION
  Report Type: 
  Country: None (occurrence: None)
  Receive Date: 20081119
  Receipt Date: 20081104
  Transmission Date: 20090506
  Serious: Yes (Hospitalization)
  Sender: FDA-Public Use
  Company Number: 14693

PATIENT
  Age: 46 Year
  Sex: Female

DRUGS (6)
  1. MORPHINE SULFATE [Suspect]
     Indication: BACK PAIN
     Dosage: 120 MG BID ORALLY
     Route: 048
     Dates: start: 20080509, end: 20080512
  2. CLONIDINE [Concomitant]
  3. FUROSEMIDE [Concomitant]
  4. METOPROLOL TARTRATE [Concomitant]
  5. SOMA [Concomitant]
  6. NORTRIPTYLINE HYDROCHLORIDE [Concomitant]

REACTIONS (11)
  - ACUTE HEPATIC FAILURE [None]
  - CONFUSIONAL STATE [None]
  - DEHYDRATION [None]
  - DRUG SCREEN POSITIVE [None]
  - LETHARGY [None]
  - OVERDOSE [None]
  - PRODUCT QUALITY ISSUE [None]
  - RENAL FAILURE ACUTE [None]
  - RHABDOMYOLYSIS [None]
  - SOMNOLENCE [None]
  - TREATMENT NONCOMPLIANCE [None]
